FAERS Safety Report 11829766 (Version 5)
Quarter: 2016Q1

REPORT INFORMATION
  Report Type: Spontaneous
  Country: ES (occurrence: ES)
  Receive Date: 20151212
  Receipt Date: 20160128
  Transmission Date: 20160525
  Serious: Yes (Death, Life-Threatening, Hospitalization, Other)
  Sender: FDA-Public Use
  Company Number: ES-ASTRAZENECA-2015SF23057

PATIENT
  Age: 19424 Day
  Sex: Female
  Weight: 97.6 kg

DRUGS (24)
  1. FORXIGA [Suspect]
     Active Substance: DAPAGLIFLOZIN
     Indication: OBESITY
     Route: 048
     Dates: start: 20151113, end: 20151125
  2. FORXIGA [Suspect]
     Active Substance: DAPAGLIFLOZIN
     Indication: HYPERGLYCAEMIA
     Route: 048
     Dates: start: 20151113, end: 20151125
  3. METFORMIN [Concomitant]
     Active Substance: METFORMIN HYDROCHLORIDE
     Indication: TYPE 2 DIABETES MELLITUS
     Dates: end: 20151126
  4. SYMBICORT [Concomitant]
     Active Substance: BUDESONIDE\FORMOTEROL FUMARATE DIHYDRATE
     Indication: ASTHMA
     Dates: end: 20151126
  5. FORXIGA [Suspect]
     Active Substance: DAPAGLIFLOZIN
     Indication: HYPERGLYCAEMIA
     Dosage: 1 TABLET/24 H
     Route: 048
     Dates: start: 20151105, end: 20151123
  6. SAXAGLIPTIN [Concomitant]
     Active Substance: SAXAGLIPTIN
     Indication: TYPE 2 DIABETES MELLITUS
     Route: 048
     Dates: end: 20150911
  7. GLIMEPIRIDE. [Concomitant]
     Active Substance: GLIMEPIRIDE
     Indication: TYPE 2 DIABETES MELLITUS
     Route: 048
     Dates: end: 20151105
  8. METAMIZOLE [Concomitant]
     Active Substance: METAMIZOLE
  9. SYMBICORT [Concomitant]
     Active Substance: BUDESONIDE\FORMOTEROL FUMARATE DIHYDRATE
     Indication: ASTHMA
     Dates: end: 20151126
  10. FORXIGA [Suspect]
     Active Substance: DAPAGLIFLOZIN
     Indication: OBESITY
     Dosage: 1 TABLET/24 H
     Route: 048
     Dates: start: 20151105, end: 20151123
  11. FERROUS [Concomitant]
     Active Substance: IRON
     Dates: end: 20151126
  12. GLIMEPIRIDE. [Concomitant]
     Active Substance: GLIMEPIRIDE
     Indication: TYPE 2 DIABETES MELLITUS
     Route: 048
     Dates: end: 20151105
  13. FORXIGA [Suspect]
     Active Substance: DAPAGLIFLOZIN
     Indication: TYPE 2 DIABETES MELLITUS
     Dosage: 1 TABLET/24 H
     Route: 048
     Dates: start: 20151105, end: 20151123
  14. METFORMIN PIOGLITAZONE [Concomitant]
     Indication: TYPE 2 DIABETES MELLITUS
     Dosage: 850,15/8 H
     Route: 048
     Dates: end: 20151105
  15. MIDAZOLAM [Concomitant]
     Active Substance: MIDAZOLAM\MIDAZOLAM HYDROCHLORIDE
     Dates: end: 20151201
  16. ESOMEPRAZOLE [Concomitant]
     Active Substance: ESOMEPRAZOLE
  17. IRON SUCCINYL-PROTEIN COMPLEX [Concomitant]
     Dates: end: 20151126
  18. OMEPRAZOL [Concomitant]
     Active Substance: OMEPRAZOLE
     Dates: end: 20151126
  19. METFORMIN PIOGLITAZONE [Concomitant]
     Indication: TYPE 2 DIABETES MELLITUS
     Route: 048
     Dates: end: 20151105
  20. TERBASMIN [Concomitant]
     Active Substance: TERBUTALINE SULFATE
     Indication: ASTHMA
     Dates: end: 20151126
  21. PARACETAMOL [Concomitant]
     Active Substance: ACETAMINOPHEN
     Dates: end: 20151126
  22. NOLOTIL [Concomitant]
     Active Substance: METAMIZOLE
     Dates: end: 20151126
  23. FORXIGA [Suspect]
     Active Substance: DAPAGLIFLOZIN
     Indication: TYPE 2 DIABETES MELLITUS
     Route: 048
     Dates: start: 20151113, end: 20151125
  24. FENOFIBRATE. [Concomitant]
     Active Substance: FENOFIBRATE
     Dates: end: 20151126

REACTIONS (10)
  - Hypokalaemia [Unknown]
  - Quadriplegia [Unknown]
  - Demyelination [Unknown]
  - Depressed level of consciousness [Unknown]
  - Diabetic ketoacidosis [Fatal]
  - Coronary artery disease [Fatal]
  - Status epilepticus [Fatal]
  - Multiple organ dysfunction syndrome [Fatal]
  - Hypernatraemia [Recovered/Resolved]
  - Metabolic encephalopathy [Unknown]

NARRATIVE: CASE EVENT DATE: 20151125
